FAERS Safety Report 6239226-3 (Version None)
Quarter: 2009Q2

REPORT INFORMATION
  Report Type: 
  Country: None (occurrence: None)
  Receive Date: 20090622
  Receipt Date: 20090612
  Transmission Date: 20091009
  Serious: Yes (Death, Hospitalization, Other)
  Sender: FDA-Public Use
  Company Number: CA-ABBOTT-09P-028-0502353-00

PATIENT
  Sex: Male
  Weight: 68.1 kg

DRUGS (1)
  1. LUPRON DEPOT [Suspect]
     Indication: PROSTATE CANCER
     Dates: start: 20081016, end: 20090221

REACTIONS (5)
  - ABDOMINAL PAIN [None]
  - BACK PAIN [None]
  - METASTASES TO BONE [None]
  - NECK PAIN [None]
  - PROSTATE CANCER [None]
